FAERS Safety Report 23950468 (Version 1)
Quarter: 2024Q2

REPORT INFORMATION
  Report Type: Spontaneous
  Country: US (occurrence: None)
  Receive Date: 20240606
  Receipt Date: 20240606
  Transmission Date: 20240716
  Serious: No
  Sender: FDA-Public Use
  Company Number: None

PATIENT
  Sex: Female

DRUGS (2)
  1. ZEPZELCA [Suspect]
     Active Substance: LURBINECTEDIN
     Route: 042
     Dates: start: 202405
  2. IMFINZI [Concomitant]
     Active Substance: DURVALUMAB
     Route: 042

REACTIONS (1)
  - Hospice care [None]
